FAERS Safety Report 4427687-1 (Version None)
Quarter: 2004Q3

REPORT INFORMATION
  Report Type: 
  Country: None (occurrence: None)
  Receive Date: 20040816
  Receipt Date: 20040816
  Transmission Date: 20050211
  Serious: Yes (Death, Hospitalization)
  Sender: FDA-Public Use
  Company Number: None

PATIENT
  Sex: Male
  Weight: 68.0396 kg

DRUGS (8)
  1. CIPROFLOXACIN [Suspect]
     Indication: GASTROINTESTINAL DISORDER
     Dosage: 1 DAILY ORAL
     Route: 048
     Dates: start: 20040310, end: 20040322
  2. CIPROFLOXACIN [Suspect]
     Indication: OVERGROWTH BACTERIAL
     Dosage: 1 DAILY ORAL
     Route: 048
     Dates: start: 20040310, end: 20040322
  3. URSODEOXYCHOLIC ACID [Concomitant]
  4. SYNTHROID [Concomitant]
  5. LACTULOSE [Concomitant]
  6. FUROSEMIDE [Concomitant]
  7. AMILORIDE [Concomitant]
  8. PREVACID [Concomitant]

REACTIONS (4)
  - CONTUSION [None]
  - HAEMORRHAGE [None]
  - IMMUNE SYSTEM DISORDER [None]
  - THROMBOCYTOPENIA [None]
